FAERS Safety Report 6462275-7 (Version None)
Quarter: 2009Q4

REPORT INFORMATION
  Report Type: 
  Country: None (occurrence: None)
  Receive Date: 20091130
  Receipt Date: 20091117
  Transmission Date: 20100525
  Serious: Yes (Hospitalization)
  Sender: FDA-Public Use
  Company Number: GB-BAYER-200935854GPV

PATIENT
  Age: 37 Year
  Sex: Male

DRUGS (6)
  1. AMOXICILLIN [Suspect]
     Indication: TOOTH ABSCESS
  2. CIPROFLOXACIN [Suspect]
     Indication: INFECTION
     Dates: start: 20080101, end: 20080101
  3. GENTAMICIN [Suspect]
     Indication: INFECTION
     Dates: start: 20080101, end: 20080101
  4. METRONIDAZOLE [Suspect]
     Indication: INFECTION
     Dates: start: 20080101, end: 20080101
  5. CLINDAMYCIN [Suspect]
     Indication: INFECTION
     Dates: start: 20080101, end: 20080101
  6. TAZOCIN [Suspect]
     Indication: INFECTION
     Dates: start: 20080101, end: 20080101

REACTIONS (10)
  - BONE MARROW FAILURE [None]
  - DRUG RASH WITH EOSINOPHILIA AND SYSTEMIC SYMPTOMS [None]
  - EOSINOPHILIA [None]
  - HEPATIC FAILURE [None]
  - HYPOTENSION [None]
  - PYREXIA [None]
  - RASH MACULAR [None]
  - RENAL FAILURE [None]
  - TACHYCARDIA [None]
  - TACHYPNOEA [None]
